FAERS Safety Report 7220873-7 (Version None)
Quarter: 2011Q1

REPORT INFORMATION
  Report Type: 
  Country: None (occurrence: None)
  Receive Date: 20110112
  Receipt Date: 20101213
  Transmission Date: 20110831
  Serious: No
  Sender: FDA-Public Use
  Company Number: US-JNJFOC-20101205528

PATIENT
  Sex: Female
  Weight: 77.11 kg

DRUGS (12)
  1. COMBIVENT [Concomitant]
     Indication: CHRONIC OBSTRUCTIVE PULMONARY DISEASE
     Dosage: 2 PUFFS 4-6 TIMES/DAY
     Route: 055
  2. GABAPENTIN [Concomitant]
     Indication: BACK PAIN
     Route: 048
  3. INVEGA [Suspect]
     Indication: NERVOUSNESS
     Route: 048
  4. INVEGA [Suspect]
     Indication: PARANOIA
     Route: 048
  5. MELOXICAM [Concomitant]
     Route: 048
  6. VENTOLIN HFA [Concomitant]
     Indication: CHRONIC OBSTRUCTIVE PULMONARY DISEASE
     Dosage: 2 PUFFS EVERY 4-6 HOURS/DAILY
     Route: 055
  7. VITAMIN D3 [Concomitant]
     Indication: OSTEOPOROSIS
     Dosage: WEEKLY FOR 4 WEEKS
     Route: 048
  8. INVEGA [Suspect]
     Indication: SCHIZOAFFECTIVE DISORDER
     Route: 048
  9. COMBIVENT [Concomitant]
     Indication: ASTHMA
     Dosage: 2 PUFFS 4-6 TIMES/DAY
     Route: 055
  10. VENTOLIN HFA [Concomitant]
     Indication: ASTHMA
     Dosage: 2 PUFFS EVERY 4-6 HOURS/DAILY
     Route: 055
  11. TRILEPTAL [Concomitant]
     Indication: BIPOLAR DISORDER
     Route: 048
  12. VITAMIN D3 [Concomitant]
     Indication: RHEUMATOID ARTHRITIS
     Dosage: WEEKLY FOR 4 WEEKS
     Route: 048

REACTIONS (2)
  - AKATHISIA [None]
  - INSOMNIA [None]
